FAERS Safety Report 16124808 (Version 2)
Quarter: 2020Q2

REPORT INFORMATION
  Report Type: Spontaneous
  Country: US (occurrence: US)
  Receive Date: 20190327
  Receipt Date: 20200512
  Transmission Date: 20200713
  Serious: Yes (Hospitalization, Other)
  Sender: FDA-Public Use
  Company Number: US-ASTRAZENECA-2019SE44374

PATIENT
  Age: 21347 Day
  Sex: Male

DRUGS (30)
  1. AGGRENOX [Concomitant]
     Active Substance: ASPIRIN\DIPYRIDAMOLE
     Route: 048
     Dates: start: 20120102
  2. KAYEXALATE [Concomitant]
     Active Substance: SODIUM POLYSTYRENE SULFONATE
     Route: 065
  3. PLAVIX [Concomitant]
     Active Substance: CLOPIDOGREL BISULFATE
     Route: 048
     Dates: start: 20150920
  4. BENAZEPRIL [Concomitant]
     Active Substance: BENAZEPRIL HYDROCHLORIDE
     Route: 048
     Dates: start: 20120604
  5. LIPITOR [Concomitant]
     Active Substance: ATORVASTATIN CALCIUM
     Route: 048
     Dates: start: 20150512
  6. IBUPROFEN. [Concomitant]
     Active Substance: IBUPROFEN
     Route: 065
     Dates: start: 20131019
  7. HYDROCHLOROTHIAZIDE. [Concomitant]
     Active Substance: HYDROCHLOROTHIAZIDE
     Route: 048
     Dates: start: 20120110
  8. LANTUS [Concomitant]
     Active Substance: INSULIN GLARGINE
  9. ULTRAM [Concomitant]
     Active Substance: TRAMADOL HYDROCHLORIDE
     Route: 048
     Dates: start: 20150512
  10. PROTONIX [Concomitant]
     Active Substance: PANTOPRAZOLE SODIUM
     Route: 048
     Dates: start: 20150521
  11. ROCALTROL [Concomitant]
     Active Substance: CALCITRIOL
     Route: 065
     Dates: start: 20150920
  12. METFORMIN HCL [Concomitant]
     Active Substance: METFORMIN HYDROCHLORIDE
     Route: 048
     Dates: start: 20120110
  13. BISACODYL. [Concomitant]
     Active Substance: BISACODYL
     Route: 065
  14. NORCO [Concomitant]
     Active Substance: ACETAMINOPHEN\HYDROCODONE BITARTRATE
     Route: 048
     Dates: start: 20150521
  15. ASPIRIN. [Concomitant]
     Active Substance: ASPIRIN
     Route: 065
  16. FAMOTIDINE. [Concomitant]
     Active Substance: FAMOTIDINE
     Route: 065
  17. HYDRALAZINE [Concomitant]
     Active Substance: HYDRALAZINE HYDROCHLORIDE
     Route: 065
  18. BRILINTA [Concomitant]
     Active Substance: TICAGRELOR
     Route: 065
     Dates: start: 20150516
  19. LASIX [Concomitant]
     Active Substance: FUROSEMIDE
     Route: 048
     Dates: start: 20150919
  20. ONGLYZA [Suspect]
     Active Substance: SAXAGLIPTIN HYDROCHLORIDE
     Indication: TYPE 2 DIABETES MELLITUS
     Route: 048
     Dates: start: 20120126, end: 20140417
  21. LIORESAL [Concomitant]
     Active Substance: BACLOFEN
     Dosage: TWO TIMES A DAY
     Route: 048
     Dates: start: 20131019
  22. ACETAMINOPHEN. [Concomitant]
     Active Substance: ACETAMINOPHEN
     Route: 065
  23. MECLIZINE [Concomitant]
     Active Substance: MECLIZINE HYDROCHLORIDE
     Route: 048
     Dates: start: 20121215
  24. ZESTRIL [Concomitant]
     Active Substance: LISINOPRIL
     Route: 048
     Dates: start: 20150918
  25. RESTORIL [Concomitant]
     Active Substance: TEMAZEPAM
     Route: 048
     Dates: start: 20150919
  26. ONGLYZA [Suspect]
     Active Substance: SAXAGLIPTIN HYDROCHLORIDE
     Indication: TYPE 2 DIABETES MELLITUS
     Route: 048
     Dates: start: 20120227
  27. ONGLYZA [Suspect]
     Active Substance: SAXAGLIPTIN HYDROCHLORIDE
     Indication: TYPE 2 DIABETES MELLITUS
     Route: 048
     Dates: start: 20121215
  28. SIMVASTATIN. [Concomitant]
     Active Substance: SIMVASTATIN
     Route: 048
     Dates: start: 20120110
  29. NORVASC [Concomitant]
     Active Substance: AMLODIPINE BESYLATE
     Route: 048
     Dates: start: 20150521
  30. VITAMIN D3 [Concomitant]
     Active Substance: CHOLECALCIFEROL
     Route: 065
     Dates: start: 20150920

REACTIONS (4)
  - Coronary artery insufficiency [Unknown]
  - Cardiac failure congestive [Unknown]
  - Aortic valve disease [Unknown]
  - Cardiovascular disorder [Unknown]

NARRATIVE: CASE EVENT DATE: 20150529
